FAERS Safety Report 15701964 (Version 1)
Quarter: 2018Q4

REPORT INFORMATION
  Report Type: Spontaneous
  Country: US (occurrence: US)
  Receive Date: 20181209
  Receipt Date: 20181209
  Transmission Date: 20190205
  Serious: No
  Sender: FDA-Public Use
  Company Number: US-DSJP-DSU-2017-150270

PATIENT

DRUGS (1)
  1. BENICAR [Suspect]
     Active Substance: OLMESARTAN MEDOXOMIL
     Indication: HYPERTENSION
     Dosage: 20 MG, UNK
     Dates: start: 20061026, end: 20120605

REACTIONS (6)
  - Gastritis [Recovered/Resolved]
  - Hiatus hernia [Unknown]
  - Dyspepsia [Not Recovered/Not Resolved]
  - Colitis [Recovered/Resolved]
  - Irritable bowel syndrome [Unknown]
  - Dizziness [Unknown]

NARRATIVE: CASE EVENT DATE: 20070612
